FAERS Safety Report 25246739 (Version 1)
Quarter: 2025Q2

REPORT INFORMATION
  Report Type: Spontaneous
  Country: US (occurrence: US)
  Receive Date: 20250428
  Receipt Date: 20250428
  Transmission Date: 20250717
  Serious: No
  Sender: CORIUM
  Company Number: US-MIMS-CORIMC-5906

PATIENT

DRUGS (2)
  1. AZSTARYS [Suspect]
     Active Substance: DEXMETHYLPHENIDATE HYDROCHLORIDE\SERDEXMETHYLPHENIDATE CHLORIDE
     Indication: Attention deficit hyperactivity disorder
     Route: 048
     Dates: start: 202411, end: 20241118
  2. REGLAN [Concomitant]
     Active Substance: METOCLOPRAMIDE HYDROCHLORIDE
     Indication: Product used for unknown indication

REACTIONS (4)
  - Contusion [Unknown]
  - Rash pruritic [Unknown]
  - Hyperhidrosis [Unknown]
  - Nausea [Unknown]

NARRATIVE: CASE EVENT DATE: 20241101
